FAERS Safety Report 7595443-1 (Version None)
Quarter: 2011Q3

REPORT INFORMATION
  Report Type: 
  Country: None (occurrence: None)
  Receive Date: 20110707
  Receipt Date: 20110628
  Transmission Date: 20111222
  Serious: Yes (Other)
  Sender: FDA-Public Use
  Company Number: US-ASTRAZENECA-2011SE26257

PATIENT
  Age: 51 Year
  Sex: Male

DRUGS (4)
  1. SEROQUEL [Suspect]
     Indication: POST-TRAUMATIC STRESS DISORDER
     Route: 048
  2. SEROQUEL [Suspect]
     Indication: DEPRESSION
     Route: 048
  3. SEROQUEL [Suspect]
     Indication: BIPOLAR DISORDER
     Route: 048
  4. SEROQUEL [Suspect]
     Indication: ANXIETY
     Route: 048

REACTIONS (13)
  - PAIN [None]
  - OFF LABEL USE [None]
  - FALL [None]
  - DRUG DOSE OMISSION [None]
  - SPINAL FRACTURE [None]
  - URINARY TRACT INFECTION [None]
  - BLOOD CHOLESTEROL INCREASED [None]
  - CERVICAL VERTEBRAL FRACTURE [None]
  - JOINT INJURY [None]
  - INSOMNIA [None]
  - MALAISE [None]
  - SLEEP DISORDER [None]
  - DRUG EFFECT PROLONGED [None]
